FAERS Safety Report 13367360 (Version 3)
Quarter: 2017Q3

REPORT INFORMATION
  Report Type: Spontaneous
  Country: CA (occurrence: CA)
  Receive Date: 20170324
  Receipt Date: 20170815
  Transmission Date: 20171127
  Serious: Yes (Other)
  Sender: FDA-Public Use
  Company Number: CA-ORION CORPORATION ORION PHARMA-TREX2017-0870

PATIENT
  Age: 54 Year
  Sex: Male
  Weight: 125 kg

DRUGS (13)
  1. HYDROCHLOROTHIAZIDE. [Concomitant]
     Active Substance: HYDROCHLOROTHIAZIDE
     Route: 065
     Dates: start: 2014
  2. SULFASALAZINE. [Concomitant]
     Active Substance: SULFASALAZINE
     Route: 065
     Dates: start: 2015
  3. ROSUVASTATIN. [Concomitant]
     Active Substance: ROSUVASTATIN
     Route: 065
     Dates: start: 2014
  4. OXYCODONE [Concomitant]
     Active Substance: OXYCODONE
     Indication: PAIN
     Dosage: 3.25 MG-5 MG, 6-8 PILLS
     Route: 048
  5. XELJANZ [Concomitant]
     Active Substance: TOFACITINIB CITRATE
     Route: 065
     Dates: start: 201402, end: 201607
  6. ENBREL [Concomitant]
     Active Substance: ETANERCEPT
     Route: 065
     Dates: start: 201509, end: 201601
  7. INFLECTRA [Suspect]
     Active Substance: INFLIXIMAB-DYYB
     Dosage: CYCLIC, EVERY 0,2. 6 WEEKS THEN EVERY 8 WEEKS FOR 11 MONTHS
     Route: 042
  8. INFLECTRA [Suspect]
     Active Substance: INFLIXIMAB-DYYB
     Dosage: CYCLIC, EVERY 0, 2, 6, WEEKS THEN EVERY 8 WEEKS
     Route: 042
  9. METHOTREXATE (TRADE NAME UNKNOWN) [Suspect]
     Active Substance: METHOTREXATE
     Route: 048
     Dates: start: 201503
  10. INFLECTRA [Suspect]
     Active Substance: INFLIXIMAB-DYYB
     Indication: RHEUMATOID ARTHRITIS
     Dosage: CYCLIC, EVERY 0,2,6 WEEKS THEN EVERY 8 WEEKS FOR 11 MONTHS
     Route: 042
     Dates: start: 20170201, end: 20170215
  11. QUINAPRIL. [Suspect]
     Active Substance: QUINAPRIL
     Route: 065
     Dates: start: 2012
  12. ORENCIA [Concomitant]
     Active Substance: ABATACEPT
     Route: 065
     Dates: start: 201607, end: 20161128
  13. LEUCOVORIN. [Suspect]
     Active Substance: LEUCOVORIN
     Route: 048
     Dates: start: 201503

REACTIONS (3)
  - Lower respiratory tract infection [Recovered/Resolved]
  - Blood pressure fluctuation [Recovered/Resolved]
  - Dyspnoea [Unknown]

NARRATIVE: CASE EVENT DATE: 20170201
